FAERS Safety Report 17431923 (Version 2)
Quarter: 2020Q2

REPORT INFORMATION
  Report Type: Report from Study
  Country: JP (occurrence: JP)
  Receive Date: 20200218
  Receipt Date: 20200528
  Transmission Date: 20200713
  Serious: Yes (Hospitalization, Other)
  Sender: FDA-Public Use
  Company Number: JP-BAUSCH-BL-2020-004595

PATIENT
  Age: 77 Year
  Sex: Male
  Weight: 54 kg

DRUGS (48)
  1. FLUOROURACIL. [Suspect]
     Active Substance: FLUOROURACIL
     Route: 041
     Dates: start: 20190227, end: 20190227
  2. FLUOROURACIL. [Suspect]
     Active Substance: FLUOROURACIL
     Dosage: ONCE
     Route: 040
     Dates: start: 20190320, end: 20190320
  3. FLUOROURACIL. [Suspect]
     Active Substance: FLUOROURACIL
     Dosage: ONCE
     Route: 041
     Dates: start: 20190808, end: 20190808
  4. ZALTRAP [Suspect]
     Active Substance: ZIV-AFLIBERCEPT
     Dosage: ONCE
     Route: 041
     Dates: start: 20190227, end: 20190227
  5. FLUOROURACIL. [Suspect]
     Active Substance: FLUOROURACIL
     Indication: RECTAL CANCER
     Route: 065
  6. FLUOROURACIL. [Suspect]
     Active Substance: FLUOROURACIL
     Dosage: ONCE
     Route: 040
     Dates: start: 20190905, end: 20190905
  7. ZALTRAP [Suspect]
     Active Substance: ZIV-AFLIBERCEPT
     Dosage: ONCE
     Route: 041
     Dates: start: 20190529, end: 20190529
  8. CALCIUM FOLINATE [Suspect]
     Active Substance: LEUCOVORIN CALCIUM
     Dosage: ONCE
     Route: 065
     Dates: start: 20190320, end: 20190320
  9. IRINOTECAN [Suspect]
     Active Substance: IRINOTECAN
     Dosage: ONCE
     Route: 065
     Dates: start: 20190704, end: 20190704
  10. FLUOROURACIL. [Suspect]
     Active Substance: FLUOROURACIL
     Dosage: ONCE
     Route: 041
     Dates: start: 20190320, end: 20190320
  11. ZALTRAP [Suspect]
     Active Substance: ZIV-AFLIBERCEPT
     Dosage: ONCE
     Route: 041
     Dates: start: 20190320, end: 20190320
  12. ZALTRAP [Suspect]
     Active Substance: ZIV-AFLIBERCEPT
     Dosage: ONCE
     Route: 041
     Dates: start: 20190808, end: 20190808
  13. IRINOTECAN [Suspect]
     Active Substance: IRINOTECAN
     Dosage: ONCE
     Route: 065
     Dates: start: 20190227, end: 20190227
  14. IRINOTECAN [Suspect]
     Active Substance: IRINOTECAN
     Dosage: ONCE
     Route: 065
     Dates: start: 20190320, end: 20190320
  15. FLUOROURACIL. [Suspect]
     Active Substance: FLUOROURACIL
     Dosage: ONCE
     Route: 041
     Dates: start: 20190123, end: 20190123
  16. FLUOROURACIL. [Suspect]
     Active Substance: FLUOROURACIL
     Dosage: ONCE
     Route: 040
     Dates: start: 20190529, end: 20190529
  17. ZALTRAP [Suspect]
     Active Substance: ZIV-AFLIBERCEPT
     Dosage: ONCE
     Route: 041
     Dates: start: 20190424, end: 20190424
  18. CALCIUM FOLINATE [Suspect]
     Active Substance: LEUCOVORIN CALCIUM
     Dosage: ONCE
     Route: 065
     Dates: start: 20190227, end: 20190227
  19. FLUOROURACIL. [Suspect]
     Active Substance: FLUOROURACIL
     Indication: RECTAL CANCER
     Dosage: ONCE
     Route: 040
     Dates: start: 20190123, end: 20190123
  20. FLUOROURACIL. [Suspect]
     Active Substance: FLUOROURACIL
     Dosage: ONCE
     Route: 040
     Dates: start: 20190424, end: 20190424
  21. FLUOROURACIL. [Suspect]
     Active Substance: FLUOROURACIL
     Dosage: ONCE
     Route: 040
     Dates: start: 20191017, end: 20191017
  22. ZALTRAP [Suspect]
     Active Substance: ZIV-AFLIBERCEPT
     Indication: RECTAL CANCER
     Dosage: ONCE
     Route: 041
     Dates: start: 20190123, end: 20190123
  23. ZALTRAP [Suspect]
     Active Substance: ZIV-AFLIBERCEPT
     Dosage: ONCE
     Route: 041
     Dates: start: 20190905, end: 20190905
  24. IRINOTECAN [Suspect]
     Active Substance: IRINOTECAN
     Dosage: ONCE
     Route: 065
     Dates: start: 20190808, end: 20190808
  25. IRINOTECAN [Suspect]
     Active Substance: IRINOTECAN
     Dosage: ONCE
     Route: 065
     Dates: start: 20190905, end: 20190905
  26. FLUOROURACIL. [Suspect]
     Active Substance: FLUOROURACIL
     Dosage: ONCE
     Route: 041
     Dates: start: 20190529, end: 20190529
  27. FLUOROURACIL. [Suspect]
     Active Substance: FLUOROURACIL
     Dosage: ONCE
     Route: 040
     Dates: start: 20190704, end: 20190704
  28. FLUOROURACIL. [Suspect]
     Active Substance: FLUOROURACIL
     Dosage: ONCE
     Route: 041
     Dates: start: 20190704, end: 20190704
  29. FLUOROURACIL. [Suspect]
     Active Substance: FLUOROURACIL
     Dosage: ONCE
     Route: 041
     Dates: start: 20190905, end: 20190905
  30. CALCIUM FOLINATE [Suspect]
     Active Substance: LEUCOVORIN CALCIUM
     Dosage: ONCE
     Route: 065
     Dates: start: 20190905, end: 20190905
  31. CALCIUM FOLINATE [Suspect]
     Active Substance: LEUCOVORIN CALCIUM
     Route: 065
  32. IRINOTECAN [Suspect]
     Active Substance: IRINOTECAN
     Indication: RECTAL CANCER
     Dosage: ONCE
     Route: 065
     Dates: start: 20190123, end: 20190123
  33. IRINOTECAN [Suspect]
     Active Substance: IRINOTECAN
     Dosage: ONCE
     Route: 065
     Dates: start: 20190424, end: 20190424
  34. IRINOTECAN [Suspect]
     Active Substance: IRINOTECAN
     Dosage: ONCE
     Route: 065
     Dates: start: 20190529, end: 20190529
  35. IRINOTECAN [Suspect]
     Active Substance: IRINOTECAN
     Dosage: ONCE
     Route: 065
     Dates: start: 20191017, end: 20191017
  36. ZALTRAP [Suspect]
     Active Substance: ZIV-AFLIBERCEPT
     Dosage: ONCE
     Route: 041
     Dates: start: 20190704, end: 20190704
  37. ZALTRAP [Suspect]
     Active Substance: ZIV-AFLIBERCEPT
     Dosage: ONCE
     Route: 041
     Dates: start: 20191017, end: 20191017
  38. CALCIUM FOLINATE [Suspect]
     Active Substance: LEUCOVORIN CALCIUM
     Dosage: ONCE
     Route: 065
     Dates: start: 20190529, end: 20190529
  39. CALCIUM FOLINATE [Suspect]
     Active Substance: LEUCOVORIN CALCIUM
     Dosage: ONCE
     Route: 065
     Dates: start: 20190704, end: 20190704
  40. IRINOTECAN [Suspect]
     Active Substance: IRINOTECAN
     Route: 065
  41. FLUOROURACIL. [Suspect]
     Active Substance: FLUOROURACIL
     Dosage: ONCE
     Route: 040
     Dates: start: 20190227, end: 20190227
  42. FLUOROURACIL. [Suspect]
     Active Substance: FLUOROURACIL
     Dosage: ONCE
     Route: 041
     Dates: start: 20190424, end: 20190424
  43. FLUOROURACIL. [Suspect]
     Active Substance: FLUOROURACIL
     Dosage: ONCE
     Route: 040
     Dates: start: 20190808, end: 20190808
  44. FLUOROURACIL. [Suspect]
     Active Substance: FLUOROURACIL
     Dosage: ONCE
     Route: 041
     Dates: start: 20191017, end: 20191017
  45. CALCIUM FOLINATE [Suspect]
     Active Substance: LEUCOVORIN CALCIUM
     Indication: RECTAL CANCER
     Dosage: ONCE
     Route: 065
     Dates: start: 20190123, end: 20190123
  46. CALCIUM FOLINATE [Suspect]
     Active Substance: LEUCOVORIN CALCIUM
     Dosage: ONCE
     Route: 065
     Dates: start: 20190424, end: 20190424
  47. CALCIUM FOLINATE [Suspect]
     Active Substance: LEUCOVORIN CALCIUM
     Dosage: ONCE
     Route: 065
     Dates: start: 20190808, end: 20190808
  48. CALCIUM FOLINATE [Suspect]
     Active Substance: LEUCOVORIN CALCIUM
     Dosage: ONCE
     Route: 065
     Dates: start: 20191017, end: 20191017

REACTIONS (1)
  - Febrile neutropenia [Recovering/Resolving]

NARRATIVE: CASE EVENT DATE: 20190714
